FAERS Safety Report 22375089 (Version 3)
Quarter: 2023Q2

REPORT INFORMATION
  Report Type: Spontaneous
  Country: CZ (occurrence: CZ)
  Receive Date: 20230527
  Receipt Date: 20230608
  Transmission Date: 20230722
  Serious: Yes (Other)
  Sender: FDA-Public Use
  Company Number: CZ-AUROBINDO-AUR-APL-2023-037552

PATIENT
  Age: 32 Year
  Sex: Female

DRUGS (10)
  1. TRAMADOL [Suspect]
     Active Substance: TRAMADOL
     Indication: Pain
     Dosage: UNK
     Route: 065
  2. TRAMADOL [Suspect]
     Active Substance: TRAMADOL
     Indication: Cancer pain
  3. TRAMADOL [Suspect]
     Active Substance: TRAMADOL
     Indication: Sacral pain
  4. TRAMADOL [Suspect]
     Active Substance: TRAMADOL
     Indication: Analgesic therapy
  5. DIHYDROCODEINE [Suspect]
     Active Substance: DIHYDROCODEINE
     Indication: Cancer pain
     Dosage: UNK
     Route: 065
  6. DIHYDROCODEINE [Suspect]
     Active Substance: DIHYDROCODEINE
     Indication: Sacral pain
  7. DIHYDROCODEINE [Suspect]
     Active Substance: DIHYDROCODEINE
     Indication: Analgesic therapy
  8. METAMIZOLE [Suspect]
     Active Substance: METAMIZOLE
     Indication: Analgesic therapy
     Dosage: UNK
     Route: 065
  9. XELODA [Concomitant]
     Active Substance: CAPECITABINE
     Indication: Neoplasm malignant
     Dosage: UNK
     Route: 065
  10. BUPRENORPHINE [Concomitant]
     Active Substance: BUPRENORPHINE
     Indication: Cancer pain
     Dosage: A DOSE OF 35 ?G/H TO A DOSE OF 52.5 ?G/H IN TRANSDERMAL FORM
     Route: 065

REACTIONS (3)
  - Drug intolerance [Unknown]
  - Therapy partial responder [Unknown]
  - Therapeutic product effect decreased [Unknown]
